FAERS Safety Report 13924855 (Version 1)
Quarter: 2017Q3

REPORT INFORMATION
  Report Type: Report from Study
  Country: CL (occurrence: CL)
  Receive Date: 20170831
  Receipt Date: 20170831
  Transmission Date: 20171127
  Serious: Yes (Other)
  Sender: FDA-Public Use
  Company Number: CL-EMD SERONO-8073644

PATIENT
  Sex: Female

DRUGS (1)
  1. REBIF [Suspect]
     Active Substance: INTERFERON BETA-1A
     Indication: MULTIPLE SCLEROSIS
     Route: 058
     Dates: start: 20160311

REACTIONS (9)
  - Headache [Unknown]
  - Migraine [Recovered/Resolved]
  - Depression [Unknown]
  - Vomiting [Recovered/Resolved]
  - Eye haemorrhage [Unknown]
  - Fatigue [Unknown]
  - Multiple sclerosis [Unknown]
  - Abdominal pain upper [Unknown]
  - Dizziness [Recovered/Resolved]
